FAERS Safety Report 12878844 (Version 2)
Quarter: 2016Q4

REPORT INFORMATION
  Report Type: Spontaneous
  Country: US (occurrence: US)
  Receive Date: 20161024
  Receipt Date: 20161228
  Transmission Date: 20170207
  Serious: Yes (Hospitalization, Other)
  Sender: FDA-Public Use
  Company Number: US-BELCHER PHARMACEUTICALS, LLC-2016VTS00220

PATIENT
  Age: 62 Year
  Sex: Female
  Weight: 53.97 kg

DRUGS (6)
  1. PROMETHAZINE HCL [Concomitant]
     Active Substance: PROMETHAZINE HYDROCHLORIDE
  2. HYOSCYAMINE SULFATE SL [Suspect]
     Active Substance: HYOSCYAMINE SULFATE
     Indication: GASTRIC ULCER
     Dosage: 0.125 MG, 2X/DAY
     Route: 060
     Dates: start: 201512, end: 20160920
  3. HYOSCYAMINE SULFATE SL [Suspect]
     Active Substance: HYOSCYAMINE SULFATE
     Indication: GASTROINTESTINAL DISORDER
  4. KLONOPIN [Concomitant]
     Active Substance: CLONAZEPAM
     Dosage: UNK
  5. ROPINIROLE. [Concomitant]
     Active Substance: ROPINIROLE
  6. DEPAKOTE [Concomitant]
     Active Substance: DIVALPROEX SODIUM

REACTIONS (11)
  - Haemorrhage intracranial [Recovered/Resolved]
  - Amnesia [Not Recovered/Not Resolved]
  - Seizure [Recovered/Resolved]
  - Head injury [Not Recovered/Not Resolved]
  - Hyponatraemia [Recovered/Resolved]
  - Confusional state [Recovered/Resolved]
  - Chronic obstructive pulmonary disease [Recovered/Resolved]
  - Depression [Not Recovered/Not Resolved]
  - Hypertension [Recovered/Resolved]
  - Hypovolaemia [Recovered/Resolved]
  - Fall [Recovered/Resolved]

NARRATIVE: CASE EVENT DATE: 201601
